FAERS Safety Report 8762831 (Version 2)
Quarter: 2012Q4

REPORT INFORMATION
  Report Type: 
  Country: US (occurrence: US)
  Receive Date: 20120831
  Receipt Date: 20120913
  Transmission Date: 20130627
  Serious: No
  Sender: FDA-Public Use
  Company Number: US-PFIZER INC-2012207892

PATIENT
  Age: 50 Year
  Sex: Female
  Weight: 63.95 kg

DRUGS (2)
  1. GABAPENTIN [Suspect]
     Indication: FIBROMYALGIA
     Dosage: 400 mg, 3x/day
     Dates: start: 2012, end: 201208
  2. TEGRETOL [Suspect]
     Indication: BIPOLAR DISORDER
     Dosage: UNK, (Half Chewable Tablets of 100mg)
     Dates: start: 1997

REACTIONS (6)
  - Agitation [Unknown]
  - Amnesia [Not Recovered/Not Resolved]
  - Constipation [Unknown]
  - Vomiting [Not Recovered/Not Resolved]
  - Pain [Not Recovered/Not Resolved]
  - Feeling abnormal [Not Recovered/Not Resolved]
